FAERS Safety Report 25162569 (Version 1)
Quarter: 2025Q2

REPORT INFORMATION
  Report Type: Spontaneous
  Country: US (occurrence: US)
  Receive Date: 20250404
  Receipt Date: 20250404
  Transmission Date: 20250716
  Serious: Yes (Hospitalization, Other)
  Sender: TEVA
  Company Number: US-TEVA-VS-3315579

PATIENT

DRUGS (1)
  1. UZEDY [Suspect]
     Active Substance: RISPERIDONE
     Indication: Product used for unknown indication
     Dosage: 100/0.28MG/ML, INJECTABLE SUSPENSION, FOR APPROXIMATELY 6 MONTHS
     Route: 065
     Dates: start: 2024

REACTIONS (2)
  - Cerebrovascular accident [Unknown]
  - Hypertensive crisis [Unknown]
